FAERS Safety Report 12957592 (Version 1)
Quarter: 2016Q4

REPORT INFORMATION
  Report Type: Report from Study
  Country: IT (occurrence: IT)
  Receive Date: 20161118
  Receipt Date: 20161118
  Transmission Date: 20170207
  Serious: Yes (Other)
  Sender: FDA-Public Use
  Company Number: IT-BRISTOL-MYERS SQUIBB COMPANY-BMS-2016-097221

PATIENT
  Age: 60 Year
  Sex: Female

DRUGS (1)
  1. NIVOLUMAB [Suspect]
     Active Substance: NIVOLUMAB
     Indication: NON-SMALL CELL LUNG CANCER
     Dosage: 3 MG/KG, UNK
     Route: 042
     Dates: start: 20150806, end: 20160108

REACTIONS (7)
  - Vomiting [Recovered/Resolved]
  - Malignant neoplasm progression [Unknown]
  - Asthenia [Unknown]
  - Cerebrovascular accident [Unknown]
  - Nausea [Unknown]
  - Constipation [Unknown]
  - Rash [Unknown]

NARRATIVE: CASE EVENT DATE: 201508
